FAERS Safety Report 4374843-7 (Version None)
Quarter: 2004Q2

REPORT INFORMATION
  Report Type: 
  Country: None (occurrence: None)
  Receive Date: 20040602
  Receipt Date: 20031001
  Transmission Date: 20050107
  Serious: Yes (Other)
  Sender: FDA-Public Use
  Company Number: US-JNJFOC-20031103975

PATIENT
  Sex: Female
  Weight: 137.4399 kg

DRUGS (2)
  1. PROPULSID [Suspect]
     Indication: DYSPEPSIA
     Dosage: 10 MG
     Dates: start: 19940101
  2. KETOCONAZOLE (KETOCONAZOLE) [Concomitant]

REACTIONS (1)
  - ELECTROCARDIOGRAM QT CORRECTED INTERVAL PROLONGED [None]
